FAERS Safety Report 9215098 (Version 1)
Quarter: 2013Q2

REPORT INFORMATION
  Report Type: Report from Study
  Country: IE (occurrence: IE)
  Receive Date: 20130405
  Receipt Date: 20130405
  Transmission Date: 20140414
  Serious: Yes (Other)
  Sender: FDA-Public Use
  Company Number: IE-ASTRAZENECA-2013SE21571

PATIENT
  Age: 5 Month
  Sex: Male

DRUGS (5)
  1. SYNAGIS [Suspect]
     Route: 030
     Dates: start: 201212, end: 201212
  2. SYNAGIS [Suspect]
     Route: 030
     Dates: start: 20130111, end: 20130111
  3. SYNAGIS [Suspect]
     Route: 030
     Dates: start: 20130208, end: 20130208
  4. SYNAGIS [Suspect]
     Route: 030
     Dates: start: 20130308
  5. PROPRANOLOL [Concomitant]

REACTIONS (4)
  - Cough [Recovered/Resolved]
  - Rhinitis [Recovered/Resolved]
  - Pyrexia [Recovered/Resolved]
  - Lower respiratory tract infection [Unknown]
